FAERS Safety Report 9496456 (Version 2)
Quarter: 2013Q3

REPORT INFORMATION
  Report Type: Report from Study
  Country: AU (occurrence: AU)
  Receive Date: 20130904
  Receipt Date: 20130910
  Transmission Date: 20140515
  Serious: Yes (Other)
  Sender: FDA-Public Use
  Company Number: PHHY2013AU092529

PATIENT
  Age: 83 Year
  Sex: Male
  Weight: 109.4 kg

DRUGS (12)
  1. TASIGNA [Suspect]
     Indication: CHRONIC MYELOID LEUKAEMIA
     Dosage: 200 MG, QOD
     Dates: start: 20090721
  2. TASIGNA [Suspect]
     Dosage: 200 MG, QOD
     Route: 048
  3. WARFARIN [Concomitant]
     Indication: HYPERCOAGULATION
     Dosage: UNK
     Route: 048
     Dates: start: 19920302
  4. ZYLOPRIN [Concomitant]
     Indication: GOUT
     Dosage: 150 MG, UNK
     Route: 048
     Dates: start: 19880506
  5. NORVASC [Concomitant]
     Indication: HYPERTENSION
     Dosage: 5 MG, IN THE MORNING
     Route: 048
     Dates: start: 19940223
  6. NORVASC [Concomitant]
     Indication: ANGINA PECTORIS
  7. LIPITOR [Concomitant]
     Indication: HYPERCHOLESTEROLAEMIA
     Dosage: 10 MG, IN THE MORNING
     Route: 048
     Dates: start: 20070301
  8. LASIX [Concomitant]
     Indication: CARDIAC FAILURE CONGESTIVE
     Dosage: 20 MG, UNK
  9. CALTRATE [Concomitant]
     Dosage: 600 MG, UNK
     Route: 048
  10. VITAMIN D [Concomitant]
     Indication: OSTEOPOROSIS
     Dosage: 1000 IU, IN THE MORNING
  11. VENTOLIN                           /00942701/ [Concomitant]
     Dosage: 2 DF, BID
  12. SYMBICORT [Concomitant]
     Indication: CHRONIC OBSTRUCTIVE PULMONARY DISEASE
     Dosage: 1 DF, BID

REACTIONS (1)
  - Herpes zoster [Recovered/Resolved]
